FAERS Safety Report 20098046 (Version 2)
Quarter: 2021Q4

REPORT INFORMATION
  Report Type: Spontaneous
  Country: US (occurrence: None)
  Receive Date: 20211122
  Receipt Date: 20211202
  Transmission Date: 20220303
  Serious: Yes (Other)
  Sender: FDA-Public Use
  Company Number: 2021A816582

PATIENT
  Age: 83 Year
  Sex: Male

DRUGS (9)
  1. OLAPARIB [Suspect]
     Active Substance: OLAPARIB
     Indication: Prostate cancer metastatic
     Route: 065
  2. LUPRON [Suspect]
     Active Substance: LEUPROLIDE ACETATE
     Route: 065
  3. ABIRATERONE [Suspect]
     Active Substance: ABIRATERONE
     Route: 065
  4. ENZALUTAMIDE [Suspect]
     Active Substance: ENZALUTAMIDE
     Route: 065
  5. TAXOTERE [Suspect]
     Active Substance: DOCETAXEL
     Route: 065
  6. CABAZITAXEL [Suspect]
     Active Substance: CABAZITAXEL
     Route: 065
  7. DECADRON [Suspect]
     Active Substance: DEXAMETHASONE
     Route: 065
  8. XARELTO [Suspect]
     Active Substance: RIVAROXABAN
     Route: 065
  9. SIMVASTATIN [Suspect]
     Active Substance: SIMVASTATIN
     Route: 065

REACTIONS (2)
  - Malignant neoplasm progression [Not Recovered/Not Resolved]
  - Prostatic specific antigen increased [Not Recovered/Not Resolved]
